FAERS Safety Report 20750053 (Version 1)
Quarter: 2022Q2

REPORT INFORMATION
  Report Type: Spontaneous
  Country: US (occurrence: None)
  Receive Date: 20220426
  Receipt Date: 20220426
  Transmission Date: 20220721
  Serious: Yes (Hospitalization, Other)
  Sender: FDA-Public Use
  Company Number: US-Hikma Pharmaceuticals USA Inc.-US-H14001-22-01047

PATIENT
  Age: 46 Year
  Sex: Male

DRUGS (2)
  1. LITHIUM [Suspect]
     Active Substance: LITHIUM
     Indication: Product used for unknown indication
     Dosage: UNKNOWN
     Route: 065
  2. INGREZZA [Suspect]
     Active Substance: VALBENAZINE
     Indication: Dystonia
     Dosage: UNKNOWN
     Route: 065
     Dates: start: 20220107

REACTIONS (4)
  - Hospitalisation [Recovered/Resolved]
  - Speech disorder [Unknown]
  - Lethargy [Unknown]
  - Dystonia [Unknown]

NARRATIVE: CASE EVENT DATE: 20220115
